FAERS Safety Report 5332544-2 (Version None)
Quarter: 2007Q2

REPORT INFORMATION
  Report Type: 
  Country: None (occurrence: None)
  Receive Date: 20070523
  Receipt Date: 20070511
  Transmission Date: 20071010
  Serious: Yes (Other)
  Sender: FDA-Public Use
  Company Number: GB-GILEAD-2007-0012149

PATIENT
  Sex: Male

DRUGS (9)
  1. VIREAD [Suspect]
     Indication: HIV INFECTION
     Route: 048
     Dates: start: 20040816, end: 20070419
  2. TRUVADA [Concomitant]
  3. ACYCLOVIR [Concomitant]
  4. ARTHROTEC [Concomitant]
  5. AZITHROMYCIN [Concomitant]
  6. CITALOPRAM HYDROBROMIDE [Concomitant]
  7. EFAVIRENZ [Concomitant]
  8. OMEPRAZOLE [Concomitant]
  9. SEPTRIN [Concomitant]

REACTIONS (1)
  - OSTEOPENIA [None]
